FAERS Safety Report 12295887 (Version 1)
Quarter: 2016Q2

REPORT INFORMATION
  Report Type: Spontaneous
  Country: US (occurrence: None)
  Receive Date: 20160421
  Receipt Date: 20160421
  Transmission Date: 20160815
  Serious: Yes (Other)
  Sender: FDA-Public Use
  Company Number: None

PATIENT
  Age: 66 Year
  Sex: Male
  Weight: 92.99 kg

DRUGS (1)
  1. ATORVASTATIN, 20 MG APOTEX [Suspect]
     Active Substance: ATORVASTATIN CALCIUM
     Indication: HYPERCHOLESTEROLAEMIA
     Route: 048

REACTIONS (3)
  - Joint swelling [None]
  - Blood glucose increased [None]
  - Arthralgia [None]

NARRATIVE: CASE EVENT DATE: 20160404
